FAERS Safety Report 5716219-3 (Version None)
Quarter: 2008Q2

REPORT INFORMATION
  Report Type: 
  Country: None (occurrence: None)
  Receive Date: 20080422
  Receipt Date: 20080411
  Transmission Date: 20081010
  Serious: Yes (Life-Threatening)
  Sender: FDA-Public Use
  Company Number: GXKR2008GB03554

PATIENT
  Age: 54 Year
  Sex: Female

DRUGS (16)
  1. ACETYLSALICYLIC ACID SRT [Suspect]
     Indication: CARDIOVASCULAR EVENT PROPHYLAXIS
     Dosage: 75 MG, QD, ORAL
     Route: 048
     Dates: end: 20080229
  2. DICLOFENAC(DICLQFENAC) UNKNOWN [Suspect]
     Indication: PAIN
     Dosage: 50 MG, TID, ORAL
     Route: 048
     Dates: end: 20080229
  3. ATORVASTATIN CALCIUM [Concomitant]
  4. DIAZEPAM [Concomitant]
  5. DOXYCYCLINE [Concomitant]
  6. FELODIPINE [Concomitant]
  7. HALOPERIDOL [Concomitant]
  8. HUMULIN S (INSULIN HUMAN) [Concomitant]
  9. INSULIN GLARGINE (INSULIN GLARGINE) [Concomitant]
  10. METFORMIN HCL [Concomitant]
  11. METHOCARBAMOL [Concomitant]
  12. METOCLOPRAMIDE [Concomitant]
  13. ACETAMINOPHEN [Concomitant]
  14. RAMIPRIL [Concomitant]
  15. SERTRALINE [Concomitant]
  16. VITAMIN B COMPLEX (CALCIUM PANTOTHENATE, NICOTINAMIDE, PYRIDOXINE HYDR [Concomitant]

REACTIONS (1)
  - GASTRIC ULCER PERFORATION [None]
